FAERS Safety Report 9492510 (Version 1)
Quarter: 2013Q3

REPORT INFORMATION
  Report Type: Spontaneous
  Country: US (occurrence: US)
  Receive Date: 20130830
  Receipt Date: 20130830
  Transmission Date: 20140515
  Serious: No
  Sender: FDA-Public Use
  Company Number: US-VERTEX PHARMACEUTICALS INC-2013-009054

PATIENT
  Age: 55 Year
  Sex: Female
  Weight: 118 kg

DRUGS (3)
  1. INCIVEK [Suspect]
     Indication: HEPATITIS C
     Dosage: 750 MG, TID
     Route: 048
     Dates: start: 20130816
  2. RIBAVIRIN [Suspect]
     Indication: HEPATITIS C
     Dosage: 3 TABS QAM, 4 TABS QPM
     Dates: start: 20130816
  3. PEGASYS [Suspect]
     Indication: HEPATITIS C
     Dosage: 180 ?G, UNK
     Dates: start: 20130816

REACTIONS (2)
  - Fatigue [Not Recovered/Not Resolved]
  - Haemorrhoids [Not Recovered/Not Resolved]
